FAERS Safety Report 13519626 (Version 1)
Quarter: 2017Q2

REPORT INFORMATION
  Report Type: Spontaneous
  Country: US (occurrence: US)
  Receive Date: 20170505
  Receipt Date: 20170505
  Transmission Date: 20170830
  Serious: Yes (Other)
  Sender: FDA-Public Use
  Company Number: US-INTERNATIONAL MEDICATION SYSTEMS, LIMITED-2020321

PATIENT
  Age: 79 Year
  Sex: Female
  Weight: 87 kg

DRUGS (1)
  1. LIDOCAINE HYDROCHLORIDE. [Suspect]
     Active Substance: LIDOCAINE HYDROCHLORIDE
     Indication: THERAPEUTIC PROCEDURE
     Route: 061
     Dates: start: 20170314, end: 20170314

REACTIONS (3)
  - Foreign body [Recovered/Resolved]
  - Device breakage [None]
  - Removal of foreign body [Recovered/Resolved]

NARRATIVE: CASE EVENT DATE: 20170314
